FAERS Safety Report 8826783 (Version 2)
Quarter: 2012Q4

REPORT INFORMATION
  Report Type: 
  Country: FR (occurrence: FR)
  Receive Date: 20121005
  Receipt Date: 20121210
  Transmission Date: 20130627
  Serious: Yes (Hospitalization)
  Sender: FDA-Public Use
  Company Number: FR-GLAXOSMITHKLINE-B0833854A

PATIENT
  Sex: Female
  Weight: 72 kg

DRUGS (5)
  1. ARIXTRA [Suspect]
     Indication: THROMBOSIS PROPHYLAXIS
     Dosage: 2.5MG Per day
     Route: 058
     Dates: start: 20111231, end: 20120118
  2. PARACETAMOL [Concomitant]
     Dosage: 1G Three times per day
  3. FUROSEMIDE [Concomitant]
     Dosage: 20MG Per day
  4. METFORMINE [Concomitant]
     Dosage: 1G per day
  5. RAMIPRIL [Concomitant]
     Dosage: 2.5MG Per day

REACTIONS (3)
  - Muscle haemorrhage [Recovered/Resolved]
  - Sciatica [Recovered/Resolved]
  - Bedridden [Recovered/Resolved]
